FAERS Safety Report 6159841 (Version 4)
Quarter: 2014Q2

REPORT INFORMATION
  Report Type: Spontaneous
  Country: US (occurrence: US)
  Receive Date: 20061101
  Receipt Date: 20140502
  Transmission Date: 20141212
  Serious: Yes (Congenital Anomaly, Other)
  Sender: FDA-Public Use
  Company Number: US-JNJFOC-20061006456

PATIENT
  Age: 0 Day
  Sex: Male
  Weight: 1.36 kg

DRUGS (2)
  1. TOPAMAX [Suspect]
     Indication: FOETAL EXPOSURE DURING PREGNANCY
     Route: 064
     Dates: start: 200504
  2. TOPAMAX [Suspect]
     Indication: FOETAL EXPOSURE DURING PREGNANCY
     Route: 064
     Dates: start: 200505

REACTIONS (5)
  - Low birth weight baby [Unknown]
  - Umbilical cord around neck [Recovered/Resolved]
  - Developmental delay [Not Recovered/Not Resolved]
  - Otitis media chronic [Recovered/Resolved]
  - Ankyloglossia congenital [Unknown]
